FAERS Safety Report 24905877 (Version 1)
Quarter: 2025Q1

REPORT INFORMATION
  Report Type: Spontaneous
  Country: US (occurrence: US)
  Receive Date: 20250130
  Receipt Date: 20250130
  Transmission Date: 20250409
  Serious: No
  Sender: TAIHO ONCOLOGY INC
  Company Number: US-TAIHOP-2025-000919

PATIENT
  Age: 66 Year
  Sex: Male
  Weight: 94.35 kg

DRUGS (1)
  1. LONSURF [Suspect]
     Active Substance: TIPIRACIL HYDROCHLORIDE\TRIFLURIDINE
     Indication: Colon cancer
     Dosage: DOSE, FORM STRENGTH AND CYCLE UNKNOWN
     Route: 048

REACTIONS (1)
  - Dry mouth [Unknown]
